FAERS Safety Report 20952079 (Version 7)
Quarter: 2023Q2

REPORT INFORMATION
  Report Type: Report from Study
  Country: CA (occurrence: CA)
  Receive Date: 20220613
  Receipt Date: 20230414
  Transmission Date: 20230722
  Serious: Yes (Other)
  Sender: FDA-Public Use
  Company Number: CA-AMRYT PHARMACEUTICALS DAC-AEGR005902

PATIENT

DRUGS (15)
  1. JUXTAPID [Suspect]
     Active Substance: LOMITAPIDE MESYLATE
     Indication: Type IIa hyperlipidaemia
     Dosage: 20 MILLIGRAM, QD
     Route: 048
     Dates: start: 20160311
  2. JUXTAPID [Suspect]
     Active Substance: LOMITAPIDE MESYLATE
     Dosage: 5 MILLIGRAM, QD X 1WEEK
     Route: 048
  3. JUXTAPID [Suspect]
     Active Substance: LOMITAPIDE MESYLATE
     Dosage: 10 MILLIGRAM, QD X1 WEEK
     Route: 048
  4. JUXTAPID [Suspect]
     Active Substance: LOMITAPIDE MESYLATE
     Dosage: 20 MILLIGRAM, QD
     Route: 048
  5. JUXTAPID [Suspect]
     Active Substance: LOMITAPIDE MESYLATE
     Dosage: 15 MILLIGRAM
     Dates: start: 20160316
  6. JUXTAPID [Suspect]
     Active Substance: LOMITAPIDE MESYLATE
     Dosage: 5 MILLIGRAM
     Route: 048
     Dates: start: 20160316
  7. JUXTAPID [Suspect]
     Active Substance: LOMITAPIDE MESYLATE
     Dosage: 10 MILLIGRAM (2 X 5MG PER DAY), QD
     Route: 048
     Dates: start: 20160311
  8. JUXTAPID [Suspect]
     Active Substance: LOMITAPIDE MESYLATE
     Dosage: 15 MILLIGRAM, QD
     Route: 048
     Dates: start: 20160311
  9. JUXTAPID [Suspect]
     Active Substance: LOMITAPIDE MESYLATE
     Dosage: 10 MILLIGRAM (2 X 5MG PER DAY), QD, SOMETIMES 5 MG DAILY
     Route: 048
     Dates: start: 20210311
  10. JUXTAPID [Suspect]
     Active Substance: LOMITAPIDE MESYLATE
     Dosage: 5 MG OR 10 MG DAILY
     Route: 048
     Dates: start: 20230407
  11. ASPIRIN [Concomitant]
     Active Substance: ASPIRIN
     Indication: Product used for unknown indication
  12. CRESTOR [Concomitant]
     Active Substance: ROSUVASTATIN CALCIUM
     Indication: Product used for unknown indication
     Dosage: UNK
     Dates: start: 20220615
  13. EZETIMIBE [Concomitant]
     Active Substance: EZETIMIBE
     Indication: Product used for unknown indication
     Dosage: UNK
     Dates: end: 20230407
  14. LIPITOR [Concomitant]
     Active Substance: ATORVASTATIN CALCIUM
     Indication: Product used for unknown indication
  15. NIASPAN [Concomitant]
     Active Substance: NIACIN
     Indication: Product used for unknown indication

REACTIONS (3)
  - Alanine aminotransferase increased [Unknown]
  - Low density lipoprotein abnormal [Unknown]
  - Hepatic enzyme increased [Unknown]

NARRATIVE: CASE EVENT DATE: 20230321
